FAERS Safety Report 18784240 (Version 2)
Quarter: 2021Q1

REPORT INFORMATION
  Report Type: Spontaneous
  Country: FR (occurrence: FR)
  Receive Date: 20210126
  Receipt Date: 20210211
  Transmission Date: 20210419
  Serious: Yes (Death, Other)
  Sender: FDA-Public Use
  Company Number: FR-BIOGEN-2020BI00957103

PATIENT
  Age: 68 Year
  Sex: Female

DRUGS (3)
  1. TYSABRI [Suspect]
     Active Substance: NATALIZUMAB
     Dosage: CURE EVERY 4 WEEKS
     Route: 065
     Dates: start: 202007, end: 20201104
  2. TYSABRI [Suspect]
     Active Substance: NATALIZUMAB
     Indication: MULTIPLE SCLEROSIS
     Dosage: CURE EVERY 4 WEEKS
     Route: 065
     Dates: start: 202006, end: 20201104
  3. FOLFOX [Suspect]
     Active Substance: FLUOROURACIL\LEUCOVORIN CALCIUM\OXALIPLATIN
     Indication: PANCREATIC CARCINOMA METASTATIC
     Dosage: ONE CURE ONLY
     Route: 065
     Dates: start: 20201217, end: 20201217

REACTIONS (3)
  - Anaemia [Fatal]
  - Pancreatic carcinoma metastatic [Unknown]
  - Septic shock [Fatal]

NARRATIVE: CASE EVENT DATE: 20201227
